FAERS Safety Report 18307797 (Version 1)
Quarter: 2020Q3

REPORT INFORMATION
  Report Type: Spontaneous
  Country: US (occurrence: US)
  Receive Date: 20200924
  Receipt Date: 20200924
  Transmission Date: 20201103
  Serious: Yes (Other)
  Sender: FDA-Public Use
  Company Number: US-PFIZER INC-2020367657

PATIENT
  Age: 71 Year
  Sex: Female
  Weight: 50.79 kg

DRUGS (7)
  1. TRAMADOL. [Suspect]
     Active Substance: TRAMADOL
     Dosage: UNK
  2. HYDROCHLOROTHIAZIDE. [Suspect]
     Active Substance: HYDROCHLOROTHIAZIDE
     Dosage: UNK
  3. HYDROCODONE [Suspect]
     Active Substance: HYDROCODONE
     Dosage: UNK
  4. CODEINE [Suspect]
     Active Substance: CODEINE
     Dosage: UNK
  5. FLONASE [Suspect]
     Active Substance: FLUTICASONE PROPIONATE
     Dosage: UNK
  6. NEURONTIN [Suspect]
     Active Substance: GABAPENTIN
     Indication: NEUROPATHY PERIPHERAL
     Dosage: UNK
     Dates: start: 202007
  7. LORTAB [Suspect]
     Active Substance: ACETAMINOPHEN\HYDROCODONE BITARTRATE
     Dosage: UNK

REACTIONS (12)
  - Hypertension [Unknown]
  - Tachycardia paroxysmal [Unknown]
  - Off label use [Unknown]
  - Skin cancer [Unknown]
  - Hypersensitivity [Unknown]
  - Depression [Unknown]
  - Angle closure glaucoma [Unknown]
  - Hyperlipidaemia [Unknown]
  - Iron deficiency anaemia [Unknown]
  - Back pain [Unknown]
  - Osteoarthritis [Unknown]
  - Product use in unapproved indication [Unknown]
